FAERS Safety Report 8341202-1 (Version None)
Quarter: 2012Q2

REPORT INFORMATION
  Report Type: 
  Country: None (occurrence: None)
  Receive Date: 20120507
  Receipt Date: 20120424
  Transmission Date: 20120825
  Serious: Yes (Life-Threatening, Hospitalization, Other)
  Sender: FDA-Public Use
  Company Number: US-JNJFOC-20120502941

PATIENT

DRUGS (6)
  1. TYLENOL (CAPLET) [Suspect]
     Route: 065
  2. VITAMIN C [Suspect]
     Indication: PRODUCT USED FOR UNKNOWN INDICATION
     Route: 065
  3. NEURONTIN [Suspect]
     Indication: PRODUCT USED FOR UNKNOWN INDICATION
     Dosage: 2-3 TABLETS
     Route: 048
  4. IBUPROFEN TABLETS [Suspect]
     Indication: PRODUCT USED FOR UNKNOWN INDICATION
     Dosage: 2-3 TABLETS
     Route: 065
  5. TYLENOL (CAPLET) [Suspect]
     Indication: PRODUCT USED FOR UNKNOWN INDICATION
     Route: 065
  6. CORTICOSTEROID (UNSPECIFIED) [Suspect]
     Indication: PRODUCT USED FOR UNKNOWN INDICATION
     Route: 065

REACTIONS (14)
  - RECTAL HAEMORRHAGE [None]
  - HYPERSOMNIA [None]
  - HYPOTENSION [None]
  - PHOTOPHOBIA [None]
  - HAEMATOCHEZIA [None]
  - ORTHOSTATIC HEART RATE RESPONSE INCREASED [None]
  - SEDATION [None]
  - NAUSEA [None]
  - VISION BLURRED [None]
  - HEADACHE [None]
  - FREQUENT BOWEL MOVEMENTS [None]
  - TACHYCARDIA [None]
  - ASTHENIA [None]
  - PALLOR [None]
